FAERS Safety Report 24605393 (Version 2)
Quarter: 2025Q1

REPORT INFORMATION
  Report Type: Spontaneous
  Country: US (occurrence: US)
  Receive Date: 20241111
  Receipt Date: 20250222
  Transmission Date: 20250408
  Serious: No
  Sender: SANOFI AVENTIS
  Company Number: US-SA-2024SA323988

PATIENT
  Sex: Male

DRUGS (1)
  1. DUPIXENT [Suspect]
     Active Substance: DUPILUMAB
     Indication: Dermatitis atopic
     Dosage: 300 MG, QOW
     Route: 058
     Dates: start: 20191127

REACTIONS (6)
  - Discomfort [Unknown]
  - Tinnitus [Unknown]
  - Pain [Unknown]
  - Infection [Unknown]
  - Headache [Unknown]
  - Hypersensitivity [Unknown]
